FAERS Safety Report 6052858-0 (Version None)
Quarter: 2009Q1

REPORT INFORMATION
  Report Type: 
  Country: None (occurrence: None)
  Receive Date: 20090127
  Receipt Date: 20090114
  Transmission Date: 20090719
  Serious: Yes (Other)
  Sender: FDA-Public Use
  Company Number: PHHY2009DE01570

PATIENT
  Sex: Male

DRUGS (1)
  1. EUCREAS [Suspect]
     Dosage: 1 DF, BID
     Route: 048

REACTIONS (2)
  - DERMATITIS ALLERGIC [None]
  - RASH GENERALISED [None]
